FAERS Safety Report 22018893 (Version 1)
Quarter: 2023Q1

REPORT INFORMATION
  Report Type: Spontaneous
  Country: US (occurrence: US)
  Receive Date: 20230222
  Receipt Date: 20230222
  Transmission Date: 20230417
  Serious: No
  Sender: FDA-Public Use
  Company Number: US-TARO PHARMACEUTICALS USA INC.-2022TAR01375

PATIENT

DRUGS (2)
  1. MINOXIDIL [Suspect]
     Active Substance: MINOXIDIL
     Indication: Alopecia
     Dosage: UNK, OD, USE IT IN CROWN AND FRONT OF SCALP
     Route: 061
     Dates: start: 20221031, end: 20221108
  2. MINOXIDIL [Suspect]
     Active Substance: MINOXIDIL
     Dosage: UNK, BID
     Route: 061
     Dates: start: 20221108

REACTIONS (2)
  - Hair texture abnormal [Not Recovered/Not Resolved]
  - Hair disorder [Not Recovered/Not Resolved]

NARRATIVE: CASE EVENT DATE: 20221031
